FAERS Safety Report 10652456 (Version 1)
Quarter: 2014Q4

REPORT INFORMATION
  Report Type: Spontaneous
  Country: US (occurrence: US)
  Receive Date: 20141215
  Receipt Date: 20141215
  Transmission Date: 20150529
  Serious: No
  Sender: FDA-Public Use
  Company Number: US-BAYER-2014-183215

PATIENT
  Age: 73 Year
  Sex: Female

DRUGS (3)
  1. DETROL [Concomitant]
     Active Substance: TOLTERODINE TARTRATE
     Dosage: 1 MG, BID
  2. EFFEXOR [Concomitant]
     Active Substance: VENLAFAXINE HYDROCHLORIDE
     Dosage: 75 MG, 3 CAPSULES QD
  3. CIPRO [Suspect]
     Active Substance: CIPROFLOXACIN HYDROCHLORIDE
     Dosage: UNK

REACTIONS (2)
  - Diarrhoea [None]
  - Nausea [None]
